FAERS Safety Report 14503768 (Version 4)
Quarter: 2019Q4

REPORT INFORMATION
  Report Type: Report from Study
  Country: GT (occurrence: GT)
  Receive Date: 20180208
  Receipt Date: 20191018
  Transmission Date: 20200122
  Serious: Yes (Hospitalization, Other)
  Sender: FDA-Public Use
  Company Number: PHHY2018GT018912

PATIENT
  Age: 66 Year
  Sex: Female

DRUGS (2)
  1. GILENYA [Suspect]
     Active Substance: FINGOLIMOD HYDROCHLORIDE
     Indication: PRODUCT USED FOR UNKNOWN INDICATION
     Dosage: 0.5 MG, UNK
     Route: 065
     Dates: start: 201712, end: 201712
  2. CYCLOPHOSPHAMIDE. [Suspect]
     Active Substance: CYCLOPHOSPHAMIDE
     Indication: PRODUCT USED FOR UNKNOWN INDICATION
     Route: 065

REACTIONS (16)
  - Herpes virus infection [Unknown]
  - White blood cell count decreased [Unknown]
  - Dysuria [Unknown]
  - Fatigue [Unknown]
  - Renal cyst [Unknown]
  - Peripheral swelling [Not Recovered/Not Resolved]
  - Protein total abnormal [Unknown]
  - Tinnitus [Unknown]
  - Pain [Unknown]
  - Fluid retention [Unknown]
  - Urine output decreased [Unknown]
  - Urinary tract infection [Unknown]
  - Nephrotic syndrome [Unknown]
  - Blood creatinine abnormal [Unknown]
  - Weight increased [Unknown]
  - Decreased immune responsiveness [Unknown]
